FAERS Safety Report 21814228 (Version 1)
Quarter: 2023Q1

REPORT INFORMATION
  Report Type: Spontaneous
  Country: KZ (occurrence: KZ)
  Receive Date: 20230104
  Receipt Date: 20230104
  Transmission Date: 20230418
  Serious: Yes (Hospitalization, Other)
  Sender: FDA-Public Use
  Company Number: KZ-NOVOPROD-1007757

PATIENT
  Sex: Female

DRUGS (1)
  1. VICTOZA [Suspect]
     Active Substance: LIRAGLUTIDE
     Indication: Type 1 diabetes mellitus
     Dosage: 1.8 MG

REACTIONS (2)
  - Diabetic ketoacidosis [Unknown]
  - Off label use [Unknown]
